FAERS Safety Report 17771238 (Version 3)
Quarter: 2020Q2

REPORT INFORMATION
  Report Type: Spontaneous
  Country: US (occurrence: US)
  Receive Date: 20200512
  Receipt Date: 20200521
  Transmission Date: 20200714
  Serious: Yes (Hospitalization, Other)
  Sender: FDA-Public Use
  Company Number: US-ABBVIE-20K-163-3392504-00

PATIENT
  Age: 56 Year
  Sex: Female
  Weight: 175.3 kg

DRUGS (7)
  1. ZYPREXA [Suspect]
     Active Substance: OLANZAPINE
     Indication: BIPOLAR DISORDER
     Route: 065
  2. DEPAKOTE ER [Suspect]
     Active Substance: DIVALPROEX SODIUM
     Indication: EPILEPSY
     Route: 048
     Dates: start: 1975
  3. LEVOTHYROXINE. [Concomitant]
     Active Substance: LEVOTHYROXINE
     Indication: PRODUCT USED FOR UNKNOWN INDICATION
  4. DEPAKOTE ER [Suspect]
     Active Substance: DIVALPROEX SODIUM
     Route: 048
     Dates: start: 202003
  5. VALACYCLOVIR HCL [Concomitant]
     Active Substance: VALACYCLOVIR HYDROCHLORIDE
     Indication: PRODUCT USED FOR UNKNOWN INDICATION
  6. DEPAKOTE ER [Suspect]
     Active Substance: DIVALPROEX SODIUM
     Route: 048
  7. MYSOLINE [Suspect]
     Active Substance: PRIMIDONE
     Indication: SEIZURE
     Route: 065

REACTIONS (37)
  - Seizure [Not Recovered/Not Resolved]
  - Anger [Not Recovered/Not Resolved]
  - Hypertension [Not Recovered/Not Resolved]
  - Pulmonary embolism [Recovered/Resolved]
  - Seizure [Recovered/Resolved]
  - Pneumonia [Recovered/Resolved]
  - Pain [Not Recovered/Not Resolved]
  - Agitation [Unknown]
  - Psychotic disorder [Recovered/Resolved]
  - Pulmonary embolism [Recovered/Resolved]
  - Intervertebral disc protrusion [Not Recovered/Not Resolved]
  - Liver disorder [Unknown]
  - Crying [Not Recovered/Not Resolved]
  - Bipolar disorder [Recovered/Resolved]
  - Organic brain syndrome [Not Recovered/Not Resolved]
  - Adverse drug reaction [Recovered/Resolved]
  - Cardiac failure congestive [Not Recovered/Not Resolved]
  - Malignant melanoma [Recovered/Resolved]
  - Respiratory failure [Recovered/Resolved]
  - Psychotic disorder [Recovered/Resolved]
  - Aggression [Recovered/Resolved]
  - Diabetes mellitus [Not Recovered/Not Resolved]
  - Chronic obstructive pulmonary disease [Recovered/Resolved]
  - Gastrooesophageal reflux disease [Unknown]
  - Increased appetite [Not Recovered/Not Resolved]
  - Pulmonary hypertension [Not Recovered/Not Resolved]
  - Mania [Recovered/Resolved]
  - Mania [Recovered/Resolved]
  - Blood cholesterol increased [Not Recovered/Not Resolved]
  - Hypomania [Recovered/Resolved]
  - Cholecystectomy [Recovered/Resolved]
  - Mood swings [Unknown]
  - Ammonia increased [Unknown]
  - Chronic obstructive pulmonary disease [Not Recovered/Not Resolved]
  - Paranoia [Recovered/Resolved]
  - Behaviour disorder [Not Recovered/Not Resolved]
  - Unresponsive to stimuli [Recovered/Resolved]

NARRATIVE: CASE EVENT DATE: 1980
